FAERS Safety Report 5130708-4 (Version None)
Quarter: 2006Q4

REPORT INFORMATION
  Report Type: 
  Country: None (occurrence: None)
  Receive Date: 20061019
  Receipt Date: 20061010
  Transmission Date: 20070319
  Serious: Yes (Life-Threatening)
  Sender: FDA-Public Use
  Company Number: FR-ROCHE-466867

PATIENT
  Age: 48 Year
  Sex: Female

DRUGS (7)
  1. RIVOTRIL [Suspect]
     Route: 048
     Dates: end: 20060820
  2. RIVOTRIL [Suspect]
     Route: 048
  3. LEXOMIL [Interacting]
     Indication: DRUG USE FOR UNKNOWN INDICATION
     Route: 048
  4. MS CONTIN [Interacting]
     Route: 048
     Dates: start: 20060817, end: 20060820
  5. THEOSTAT [Concomitant]
     Indication: ASTHMA
     Route: 048
  6. THEOSTAT [Concomitant]
     Route: 048
  7. SERETIDE [Concomitant]
     Indication: ASTHMA
     Route: 055

REACTIONS (14)
  - ALANINE AMINOTRANSFERASE INCREASED [None]
  - ASPARTATE AMINOTRANSFERASE INCREASED [None]
  - ASTHENIA [None]
  - COMA [None]
  - CONDITION AGGRAVATED [None]
  - CONFUSIONAL STATE [None]
  - DRUG INTERACTION [None]
  - HAEMODIALYSIS [None]
  - HALLUCINATION, VISUAL [None]
  - NEUROPATHY [None]
  - RALES [None]
  - RENAL IMPAIRMENT [None]
  - RHONCHI [None]
  - SOMNOLENCE [None]
